FAERS Safety Report 23681703 (Version 1)
Quarter: 2024Q1

REPORT INFORMATION
  Report Type: Other
  Country: CN (occurrence: CN)
  Receive Date: 20240328
  Receipt Date: 20240328
  Transmission Date: 20240409
  Serious: Yes (Other)
  Sender: FDA-Public Use
  Company Number: CN-PARATEK PHARMACEUTICALS, INC.-2024PTK00228

PATIENT
  Age: 56 Year
  Sex: Male
  Weight: 78 kg

DRUGS (3)
  1. NUZYRA [Suspect]
     Active Substance: OMADACYCLINE
     Indication: Pneumonia
     Dosage: 100 MG, QD
     Route: 041
     Dates: start: 20240227, end: 20240310
  2. CEFOPERAZONE SODIUM\SULBACTAM SODIUM [Suspect]
     Active Substance: CEFOPERAZONE SODIUM\SULBACTAM SODIUM
     Indication: Pneumonia
     Dosage: 3 G, BID
     Route: 041
     Dates: start: 20240227, end: 20240304
  3. PERAMIVIR [Suspect]
     Active Substance: PERAMIVIR
     Indication: Pneumonia
     Dosage: 0.3 G, QD
     Route: 041
     Dates: start: 20240227, end: 20240306

REACTIONS (2)
  - Hepatic function abnormal [Recovering/Resolving]
  - Incorrect dose administered [Recovered/Resolved]

NARRATIVE: CASE EVENT DATE: 20240227
